FAERS Safety Report 8013741-4 (Version None)
Quarter: 2011Q4

REPORT INFORMATION
  Report Type: 
  Country: None (occurrence: None)
  Receive Date: 20111229
  Receipt Date: 20111216
  Transmission Date: 20120403
  Serious: Yes (Hospitalization, Other)
  Sender: FDA-Public Use
  Company Number: US-ELI_LILLY_AND_COMPANY-US201110001986

PATIENT
  Sex: Female

DRUGS (9)
  1. CALCIUM ACETATE [Concomitant]
     Dosage: UNK, QD
  2. FORTEO [Suspect]
     Dosage: 20 UG, QD
     Route: 065
  3. FORTEO [Suspect]
     Indication: OSTEOPOROSIS
     Dosage: 20 UG, QD
     Route: 065
  4. VITAMIN D [Concomitant]
     Dosage: UNK, QD
  5. MULTI-VITAMIN [Concomitant]
     Dosage: UNK, QD
  6. MELOXICAM [Concomitant]
     Dosage: UNK, QD
  7. GLUCOSAMINE CHONDROITIN [Concomitant]
     Dosage: UNK, QD
  8. CYMBALTA [Concomitant]
     Dosage: UNK, QD
  9. TYLENOL-500 [Concomitant]
     Dosage: UNK, QD

REACTIONS (4)
  - KNEE ARTHROPLASTY [None]
  - INJECTION SITE HAEMATOMA [None]
  - FALL [None]
  - MOBILITY DECREASED [None]
